FAERS Safety Report 9119955 (Version 4)
Quarter: 2013Q2

REPORT INFORMATION
  Report Type: Report from Study
  Country: US (occurrence: US)
  Receive Date: 20130226
  Receipt Date: 20130531
  Transmission Date: 20140414
  Serious: Yes (Life-Threatening, Hospitalization, Other)
  Sender: FDA-Public Use
  Company Number: US-JNJFOC-20130113328

PATIENT
  Sex: 0

DRUGS (19)
  1. RISPERIDONE LONG ACTING INJECTION [Suspect]
     Indication: SCHIZOPHRENIA, PARANOID TYPE
     Route: 030
  2. RISPERIDONE LONG ACTING INJECTION [Suspect]
     Indication: SCHIZOPHRENIA, DISORGANISED TYPE
     Route: 030
  3. RISPERIDONE LONG ACTING INJECTION [Suspect]
     Indication: SCHIZOPHRENIA
     Route: 030
  4. RISPERIDONE LONG ACTING INJECTION [Suspect]
     Indication: SCHIZOPHRENIA
     Route: 030
  5. RISPERIDONE LONG ACTING INJECTION [Suspect]
     Indication: SCHIZOAFFECTIVE DISORDER
     Route: 030
  6. RISPERIDONE [Suspect]
     Indication: SCHIZOPHRENIA, RESIDUAL TYPE
     Route: 048
  7. RISPERIDONE [Suspect]
     Indication: SCHIZOPHRENIA, PARANOID TYPE
     Route: 048
  8. RISPERIDONE [Suspect]
     Indication: SCHIZOPHRENIA, DISORGANISED TYPE
     Route: 048
  9. RISPERIDONE [Suspect]
     Indication: SCHIZOPHRENIA
     Route: 048
  10. RISPERIDONE [Suspect]
     Indication: SCHIZOPHRENIA
     Route: 048
  11. RISPERIDONE [Suspect]
     Indication: SCHIZOAFFECTIVE DISORDER
     Route: 048
  12. PALIPERIDONE [Suspect]
     Indication: SCHIZOPHRENIA, RESIDUAL TYPE
     Route: 048
  13. PALIPERIDONE [Suspect]
     Indication: SCHIZOPHRENIA, PARANOID TYPE
     Route: 048
  14. PALIPERIDONE [Suspect]
     Indication: SCHIZOPHRENIA, DISORGANISED TYPE
     Route: 048
  15. PALIPERIDONE [Suspect]
     Indication: SCHIZOPHRENIA
     Route: 048
  16. PALIPERIDONE [Suspect]
     Indication: SCHIZOPHRENIA
     Route: 048
  17. PALIPERIDONE [Suspect]
     Indication: SCHIZOAFFECTIVE DISORDER
     Route: 048
  18. MOOD STABILIZER, NOS [Concomitant]
     Indication: AFFECTIVE DISORDER
     Route: 065
  19. ANTIDEPRESSANT MEDICATION [Concomitant]
     Indication: DEPRESSION
     Route: 065

REACTIONS (28)
  - Schizophrenia [Unknown]
  - Schizoaffective disorder [Unknown]
  - Vision blurred [Unknown]
  - Sedation [Unknown]
  - Urticaria [Unknown]
  - Pyrexia [Unknown]
  - Enuresis [Unknown]
  - Galactorrhoea [Unknown]
  - Increased tendency to bruise [Unknown]
  - Rash [Unknown]
  - Restlessness [Unknown]
  - Insomnia [Unknown]
  - Malaise [Unknown]
  - Musculoskeletal stiffness [Unknown]
  - Tremor [Unknown]
  - Dizziness [Unknown]
  - Headache [Unknown]
  - Oropharyngeal pain [Unknown]
  - Dry mouth [Unknown]
  - Salivary hypersecretion [Unknown]
  - Constipation [Unknown]
  - Diarrhoea [Unknown]
  - Decreased appetite [Unknown]
  - Nausea [Unknown]
  - Vomiting [Unknown]
  - Menstruation irregular [Unknown]
  - Breast tenderness [Unknown]
  - Somnolence [Unknown]
